FAERS Safety Report 6384388-0 (Version None)
Quarter: 2009Q4

REPORT INFORMATION
  Report Type: 
  Country: None (occurrence: None)
  Receive Date: 20091001
  Receipt Date: 20090925
  Transmission Date: 20100525
  Serious: Yes (Hospitalization, Other)
  Sender: FDA-Public Use
  Company Number: CA-JNJFOC-20090907144

PATIENT
  Age: 51 Year
  Sex: Male
  Weight: 85.7 kg

DRUGS (8)
  1. REMICADE [Suspect]
     Route: 042
  2. REMICADE [Suspect]
     Indication: RHEUMATOID ARTHRITIS
     Route: 042
  3. REMICADE [Suspect]
     Indication: CROHN'S DISEASE
     Route: 042
  4. ASPIRIN [Concomitant]
     Indication: PROPHYLAXIS
     Route: 048
  5. FOLIC ACID [Concomitant]
     Indication: PROPHYLAXIS
     Route: 048
  6. IMODIUM [Concomitant]
     Indication: CROHN'S DISEASE
  7. ACETAMINOPHEN [Concomitant]
     Indication: RHEUMATOID ARTHRITIS
     Route: 048
  8. METHOTREXATE [Concomitant]
     Indication: RHEUMATOID ARTHRITIS
     Route: 058

REACTIONS (3)
  - ABSCESS INTESTINAL [None]
  - CROHN'S DISEASE [None]
  - INTESTINAL FISTULA [None]
